FAERS Safety Report 4881547-0 (Version None)
Quarter: 2006Q1

REPORT INFORMATION
  Report Type: 
  Country: None (occurrence: None)
  Receive Date: 20060116
  Receipt Date: 20060110
  Transmission Date: 20060701
  Serious: Yes (Other)
  Sender: FDA-Public Use
  Company Number: BE-GLAXOSMITHKLINE-B0406409A

PATIENT
  Sex: Female

DRUGS (1)
  1. LAMICTAL [Suspect]
     Indication: MIGRAINE
     Dosage: 25MG PER DAY
     Route: 065
     Dates: start: 20051215, end: 20051201

REACTIONS (3)
  - PARAESTHESIA [None]
  - PHOTOSENSITIVITY REACTION [None]
  - RASH GENERALISED [None]
